FAERS Safety Report 21889743 (Version 1)
Quarter: 2023Q1

REPORT INFORMATION
  Report Type: Spontaneous
  Country: US (occurrence: None)
  Receive Date: 20230119
  Receipt Date: 20230119
  Transmission Date: 20230417
  Serious: Yes (Hospitalization)
  Sender: FDA-Public Use
  Company Number: None

PATIENT
  Age: 14 Year
  Sex: Female

DRUGS (1)
  1. MIDOL [Suspect]
     Active Substance: IBUPROFEN

REACTIONS (3)
  - Intentional self-injury [None]
  - Intentional product use issue [None]
  - Nausea [None]

NARRATIVE: CASE EVENT DATE: 20230105
